FAERS Safety Report 4895115-8 (Version None)
Quarter: 2006Q1

REPORT INFORMATION
  Report Type: 
  Country: None (occurrence: None)
  Receive Date: 20060124
  Receipt Date: 20060117
  Transmission Date: 20060701
  Serious: Yes (Hospitalization)
  Sender: FDA-Public Use
  Company Number: TAP2006Q00103

PATIENT
  Age: 78 Year
  Sex: Male

DRUGS (6)
  1. LUPRON DEPOT-4 [Suspect]
     Indication: PROSTATE CANCER
     Dosage: 30 MG, 1 IN 4 M, INJECTION
     Dates: start: 20050531
  2. CASODEX [Concomitant]
  3. HYZAAR [Concomitant]
  4. TIAZAC [Concomitant]
  5. SYNTHROID [Concomitant]
  6. ASAPHEN E.C. (ACETYLSALICYLIC ACID) [Concomitant]

REACTIONS (1)
  - CATARACT OPERATION [None]
